FAERS Safety Report 22273130 (Version 1)
Quarter: 2023Q2

REPORT INFORMATION
  Report Type: Spontaneous
  Country: CA (occurrence: CA)
  Receive Date: 20230502
  Receipt Date: 20230502
  Transmission Date: 20230721
  Serious: Yes (Death, Other)
  Sender: FDA-Public Use
  Company Number: CA-AUROBINDO-AUR-APL-2023-033588

PATIENT
  Age: 82 Year
  Sex: Male

DRUGS (8)
  1. SERTRALINE [Suspect]
     Active Substance: SERTRALINE HYDROCHLORIDE
     Indication: Product used for unknown indication
     Dosage: UNK
     Route: 065
  2. ACETAMINOPHEN [Concomitant]
     Active Substance: ACETAMINOPHEN
     Indication: Product used for unknown indication
     Dosage: UNK
     Route: 065
  3. COVID-19 vaccine [Concomitant]
     Indication: Product used for unknown indication
     Dosage: UNK
     Route: 065
  4. ELIQUIS [Concomitant]
     Active Substance: APIXABAN
     Indication: Product used for unknown indication
     Dosage: UNK
     Route: 065
  5. FUROSEMIDE [Concomitant]
     Active Substance: FUROSEMIDE
     Indication: Product used for unknown indication
     Dosage: UNK
     Route: 065
  6. NOVORAPID [Concomitant]
     Active Substance: INSULIN ASPART
     Indication: Product used for unknown indication
     Dosage: UNK
     Route: 058
  7. PREGABALIN [Concomitant]
     Active Substance: PREGABALIN
     Indication: Product used for unknown indication
     Dosage: UNK
     Route: 065
  8. QUETIAPINE [Concomitant]
     Active Substance: QUETIAPINE
     Indication: Product used for unknown indication
     Dosage: UNK
     Route: 065

REACTIONS (19)
  - Hallucination, visual [Fatal]
  - Antidepressant drug clearance decreased [Fatal]
  - Antidepressant drug level above therapeutic [Fatal]
  - Asthenia [Fatal]
  - Disorientation [Fatal]
  - Bradykinesia [Fatal]
  - Drug-disease interaction [Fatal]
  - Dyskinesia [Fatal]
  - Gait disturbance [Fatal]
  - General physical health deterioration [Fatal]
  - Hypopnoea [Fatal]
  - Loss of personal independence in daily activities [Fatal]
  - Peripheral swelling [Fatal]
  - Incoherent [Fatal]
  - Postmortem blood drug level increased [Fatal]
  - Respiration abnormal [Fatal]
  - Somnolence [Fatal]
  - Toxicity to various agents [Fatal]
  - Product use issue [Fatal]
